FAERS Safety Report 5158724-7 (Version None)
Quarter: 2006Q4

REPORT INFORMATION
  Report Type: 
  Country: None (occurrence: None)
  Receive Date: 20061128
  Receipt Date: 20061107
  Transmission Date: 20070319
  Serious: Yes (Other)
  Sender: FDA-Public Use
  Company Number: GB-GLAXOSMITHKLINE-B0445737A

PATIENT
  Age: 49 Year
  Sex: Female

DRUGS (3)
  1. BECOTIDE [Suspect]
     Indication: ASTHMA
     Dosage: 400MCG TWICE PER DAY
     Route: 055
  2. SALBUTAMOL [Concomitant]
     Route: 055
  3. FLIXOTIDE [Concomitant]
     Route: 055

REACTIONS (1)
  - ASTHMA [None]
